FAERS Safety Report 16365194 (Version 1)
Quarter: 2019Q2

REPORT INFORMATION
  Report Type: Report from Study
  Country: FR (occurrence: FR)
  Receive Date: 20190529
  Receipt Date: 20190529
  Transmission Date: 20190711
  Serious: Yes (Death, Other)
  Sender: FDA-Public Use
  Company Number: FR-GLAXOSMITHKLINE-FR2019GSK024902

PATIENT
  Age: 81 Year
  Sex: Female
  Weight: 49 kg

DRUGS (26)
  1. ZANAMIVIR [Suspect]
     Active Substance: ZANAMIVIR
     Dosage: 400 MG, BID
     Dates: start: 20190121, end: 20190122
  2. LIPTRUZET [Concomitant]
     Active Substance: ATORVASTATIN CALCIUM\EZETIMIBE
     Dosage: 1 DF, 1D
  3. NOVORAPID [Concomitant]
     Active Substance: INSULIN ASPART
     Dosage: 8 U, TID
  4. MIDAZOLAM [Concomitant]
     Active Substance: MIDAZOLAM HYDROCHLORIDE
     Indication: AGITATION
     Dosage: UNK
     Route: 042
     Dates: start: 20190120, end: 20190122
  5. SOLUPRED [Concomitant]
     Dosage: UNK
     Route: 048
     Dates: end: 20190118
  6. ZANAMIVIR [Suspect]
     Active Substance: ZANAMIVIR
     Dosage: 400 MG, UNK
     Dates: start: 20190120, end: 20190120
  7. RAMIPRIL. [Concomitant]
     Active Substance: RAMIPRIL
     Dosage: UNK
     Route: 048
     Dates: end: 20190117
  8. LEVOFLOXACIN. [Concomitant]
     Active Substance: LEVOFLOXACIN
     Indication: RESPIRATORY DISORDER
  9. ZANAMIVIR [Suspect]
     Active Substance: ZANAMIVIR
     Indication: INFLUENZA
     Dosage: 600 MG, BID
     Route: 042
     Dates: start: 20190119, end: 20190119
  10. DIFFU-K [Concomitant]
     Active Substance: POTASSIUM CHLORIDE
     Dosage: 2 DF, BID
  11. METFORMIN [Concomitant]
     Active Substance: METFORMIN HYDROCHLORIDE
  12. LEVOFLOXACIN. [Concomitant]
     Active Substance: LEVOFLOXACIN
     Indication: INFLUENZA
     Dosage: UNK
     Dates: start: 20190110, end: 20190116
  13. ENOXAPARIN [Concomitant]
     Active Substance: ENOXAPARIN
     Dosage: 0.4 ML, 1D
     Route: 058
     Dates: start: 20190119, end: 20190120
  14. MIDAZOLAM [Concomitant]
     Active Substance: MIDAZOLAM HYDROCHLORIDE
     Indication: TACHYPNOEA
  15. MORPHINE [Concomitant]
     Active Substance: MORPHINE
     Indication: AGITATION
  16. LANZOR [Concomitant]
     Active Substance: LANSOPRAZOLE
     Route: 048
  17. MORPHINE [Concomitant]
     Active Substance: MORPHINE
     Indication: TACHYPNOEA
  18. ASPIRINE [Concomitant]
     Active Substance: ASPIRIN
     Dosage: UNK
     Route: 048
  19. LEVEMIR [Concomitant]
     Active Substance: INSULIN DETEMIR
     Dosage: UNK
  20. TAZOCILLINE [Concomitant]
     Active Substance: PIPERACILLIN SODIUM\TAZOBACTAM SODIUM
     Indication: INFLUENZA
     Dosage: 4 G, TID
     Dates: start: 20190116, end: 20190122
  21. METHOTREXATE. [Concomitant]
     Active Substance: METHOTREXATE
     Route: 048
  22. LASILIX [Concomitant]
     Active Substance: FUROSEMIDE
  23. LOXEN [Concomitant]
     Dosage: 50 MG, BID
  24. BISOPROLOL [Concomitant]
     Active Substance: BISOPROLOL
     Dosage: 1.25 MG, 1D
  25. TAZOCILLINE [Concomitant]
     Active Substance: PIPERACILLIN SODIUM\TAZOBACTAM SODIUM
     Indication: RESPIRATORY DISORDER
  26. NEFOPAM [Concomitant]
     Active Substance: NEFOPAM
     Dosage: UNK
     Route: 042
     Dates: start: 20190119, end: 20190120

REACTIONS (3)
  - Respiratory distress [Fatal]
  - Mouth haemorrhage [Unknown]
  - Condition aggravated [Fatal]

NARRATIVE: CASE EVENT DATE: 201901
